FAERS Safety Report 4652020-X (Version None)
Quarter: 2005Q2

REPORT INFORMATION
  Report Type: 
  Country: None (occurrence: None)
  Receive Date: 20050502
  Receipt Date: 20040915
  Transmission Date: 20051028
  Serious: Yes (Death)
  Sender: FDA-Public Use
  Company Number: MED000113

PATIENT
  Age: 72 Year
  Sex: 0

DRUGS (2)
  1. DOPAMINE HCL IN 5% DEXTROSE [Suspect]
     Dosage: 250 ML
     Dates: start: 20040914, end: 20040914
  2. HEPARIN SODIUM [Suspect]
     Dosage: 200 IU;QH
     Dates: start: 20040914, end: 20040914

REACTIONS (11)
  - ACUTE RESPIRATORY DISTRESS SYNDROME [None]
  - BLOOD GLUCOSE INCREASED [None]
  - BRADYCARDIA [None]
  - CARDIO-RESPIRATORY ARREST [None]
  - DEVICE FAILURE [None]
  - HYPOTENSION [None]
  - INTESTINAL INFARCTION [None]
  - LOSS OF CONSCIOUSNESS [None]
  - SMALL INTESTINAL OBSTRUCTION [None]
  - SYSTEMIC INFLAMMATORY RESPONSE SYNDROME [None]
  - URINE KETONE BODY PRESENT [None]
